FAERS Safety Report 7667729-3 (Version None)
Quarter: 2011Q3

REPORT INFORMATION
  Report Type: 
  Country: None (occurrence: None)
  Receive Date: 20110806
  Receipt Date: 20110516
  Transmission Date: 20111222
  Serious: No
  Sender: FDA-Public Use
  Company Number: US-ABBOTT-11P-163-0726670-00

PATIENT
  Sex: Male
  Weight: 86.26 kg

DRUGS (5)
  1. RAMIPRIL [Concomitant]
     Indication: HYPERTENSION
  2. NIASPAN [Suspect]
     Indication: BLOOD CHOLESTEROL INCREASED
     Dates: start: 20060101
  3. NIASPAN [Suspect]
     Dates: start: 20110401
  4. CRESTOR [Concomitant]
     Indication: BLOOD CHOLESTEROL INCREASED
  5. LOVAZA [Concomitant]
     Indication: BLOOD CHOLESTEROL INCREASED

REACTIONS (2)
  - HYPERHIDROSIS [None]
  - FLUSHING [None]
